FAERS Safety Report 16812840 (Version 1)
Quarter: 2019Q3

REPORT INFORMATION
  Report Type: Spontaneous
  Country: US (occurrence: US)
  Receive Date: 20190916
  Receipt Date: 20190916
  Transmission Date: 20191005
  Serious: No
  Sender: FDA-Public Use
  Company Number: US-JAZZ-2019-US-001904

PATIENT

DRUGS (1)
  1. ERWINAZE [Suspect]
     Active Substance: ASPARAGINASE ERWINIA CHRYSANTHEMI
     Indication: PRODUCT USED FOR UNKNOWN INDICATION
     Dosage: UNKNOWN DOSE
     Dates: start: 20181217

REACTIONS (5)
  - Headache [Recovering/Resolving]
  - Flushing [Unknown]
  - Nausea [Recovering/Resolving]
  - Vomiting [Unknown]
  - Ammonia increased [Unknown]
